FAERS Safety Report 9531866 (Version 2)
Quarter: 2013Q4

REPORT INFORMATION
  Report Type: Spontaneous
  Country: IT (occurrence: IT)
  Receive Date: 20130918
  Receipt Date: 20131121
  Transmission Date: 20140711
  Serious: Yes (Hospitalization)
  Sender: FDA-Public Use
  Company Number: IT-SANOFI-AVENTIS-2013SA090978

PATIENT
  Age: 49 Year
  Sex: Male

DRUGS (8)
  1. STILNOX [Suspect]
     Indication: INSOMNIA
     Route: 048
     Dates: start: 20130619, end: 20130622
  2. GABAPENTIN [Concomitant]
     Indication: BIPOLAR DISORDER
     Route: 048
     Dates: start: 20130622
  3. CARBOLITHIUM [Concomitant]
     Indication: BIPOLAR DISORDER
     Dosage: STRENGTH: 300 MG
     Route: 048
     Dates: start: 20130622
  4. DEPAKIN CHRONO [Concomitant]
     Indication: BIPOLAR DISORDER
     Dosage: STRENGTH: 500 MG
     Route: 048
     Dates: start: 20130622
  5. TAVOR [Concomitant]
     Indication: BIPOLAR DISORDER
     Route: 048
     Dates: start: 20130622
  6. LENDORMIN [Concomitant]
     Indication: BIPOLAR DISORDER
     Route: 048
     Dates: start: 20130622
  7. AKINETON [Concomitant]
     Indication: BIPOLAR DISORDER
     Route: 048
     Dates: start: 20130622
  8. ANTIHYPERTENSIVES [Concomitant]

REACTIONS (3)
  - Speech disorder [Recovering/Resolving]
  - Drug abuse [Recovering/Resolving]
  - Sopor [Recovering/Resolving]
